FAERS Safety Report 4432390-8 (Version None)
Quarter: 2004Q3

REPORT INFORMATION
  Report Type: 
  Country: None (occurrence: None)
  Receive Date: 20040825
  Receipt Date: 20040824
  Transmission Date: 20050211
  Serious: Yes (Hospitalization)
  Sender: FDA-Public Use
  Company Number: US-GLAXOSMITHKLINE-A0523310A

PATIENT
  Age: 48 Year
  Sex: Male

DRUGS (7)
  1. PAXIL [Suspect]
     Indication: DEPRESSION
     Dosage: 50MG PER DAY
     Route: 048
     Dates: end: 20040810
  2. NIASPAN [Concomitant]
  3. VALIUM [Concomitant]
  4. LORTAB [Concomitant]
  5. FISH OIL TABLETS [Concomitant]
  6. NEBULIZER [Concomitant]
     Indication: CHRONIC OBSTRUCTIVE AIRWAYS DISEASE
  7. STEROID [Concomitant]
     Indication: CHRONIC OBSTRUCTIVE AIRWAYS DISEASE

REACTIONS (12)
  - AGGRESSION [None]
  - DRY MOUTH [None]
  - DYSPHAGIA [None]
  - DYSPNOEA [None]
  - HEAD INJURY [None]
  - JOINT SWELLING [None]
  - LIMB INJURY [None]
  - MENTAL DISORDER [None]
  - OPEN WOUND [None]
  - PHYSICAL ASSAULT [None]
  - STRESS SYMPTOMS [None]
  - TREATMENT NONCOMPLIANCE [None]
